FAERS Safety Report 11759330 (Version 1)
Quarter: 2015Q4

REPORT INFORMATION
  Report Type: Spontaneous
  Country: US (occurrence: US)
  Receive Date: 20151120
  Receipt Date: 20151120
  Transmission Date: 20160304
  Serious: No
  Sender: FDA-Public Use
  Company Number: US-ELI_LILLY_AND_COMPANY-US201210002294

PATIENT
  Sex: Female

DRUGS (3)
  1. FORTEO [Suspect]
     Active Substance: TERIPARATIDE
     Indication: OSTEOPOROSIS
     Dosage: 20 UG, QD
  2. FORTEO [Suspect]
     Active Substance: TERIPARATIDE
     Dosage: 20 UG, QD
  3. FORTEO [Suspect]
     Active Substance: TERIPARATIDE
     Dosage: 20 UG, OTHER

REACTIONS (6)
  - Back pain [Not Recovered/Not Resolved]
  - Inflammation [Not Recovered/Not Resolved]
  - Pruritus [Not Recovered/Not Resolved]
  - Arthralgia [Not Recovered/Not Resolved]
  - Nausea [Recovered/Resolved]
  - Intentional product misuse [Recovered/Resolved]
